FAERS Safety Report 18762507 (Version 1)
Quarter: 2021Q1

REPORT INFORMATION
  Report Type: Spontaneous
  Country: US (occurrence: US)
  Receive Date: 20210119
  Receipt Date: 20210119
  Transmission Date: 20210419
  Serious: Yes (Hospitalization)
  Sender: FDA-Public Use
  Company Number: None

PATIENT
  Age: 58 Year
  Sex: Male

DRUGS (1)
  1. LITHIUM (LITHIUM CARBONATE 300MG CAP) [Suspect]
     Active Substance: LITHIUM CARBONATE
     Indication: DEPRESSION
     Route: 048
     Dates: start: 20141201, end: 20200915

REACTIONS (4)
  - Hyponatraemia [None]
  - Toxicity to various agents [None]
  - Renal disorder [None]
  - Parkinsonism [None]

NARRATIVE: CASE EVENT DATE: 20200915
